FAERS Safety Report 9054664 (Version 1)
Quarter: 2013Q1

REPORT INFORMATION
  Report Type: Spontaneous
  Country: US (occurrence: US)
  Receive Date: 20130208
  Receipt Date: 20130208
  Transmission Date: 20140127
  Serious: Yes (Other)
  Sender: FDA-Public Use
  Company Number: US-JNJFOC-20130116807

PATIENT
  Age: 72 None
  Sex: Female
  Weight: 66 kg

DRUGS (5)
  1. REMICADE [Suspect]
     Indication: RHEUMATOID ARTHRITIS
     Dosage: TOTAL OF 69 INFUSIONS APPROXIMATELY
     Route: 042
     Dates: start: 20021202
  2. REMICADE [Suspect]
     Indication: RHEUMATOID ARTHRITIS
     Route: 042
     Dates: start: 201112
  3. REMICADE [Suspect]
     Indication: RHEUMATOID ARTHRITIS
     Route: 042
     Dates: start: 201204
  4. METHOTREXATE [Concomitant]
     Route: 065
  5. SULFASALAZINE [Concomitant]
     Route: 065

REACTIONS (1)
  - Lung neoplasm malignant [Recovered/Resolved]
